FAERS Safety Report 4904410-5 (Version None)
Quarter: 2006Q1

REPORT INFORMATION
  Report Type: 
  Country: None (occurrence: None)
  Receive Date: 20060208
  Receipt Date: 20050829
  Transmission Date: 20060701
  Serious: No
  Sender: FDA-Public Use
  Company Number: US-GLAXOSMITHKLINE-A0572613A

PATIENT
  Sex: Female

DRUGS (3)
  1. PAXIL [Suspect]
     Indication: NARCOLEPSY
     Route: 048
  2. REMERON [Concomitant]
     Indication: NARCOLEPSY
     Route: 065
  3. ADDERALL 10 [Concomitant]
     Indication: NARCOLEPSY
     Route: 065

REACTIONS (6)
  - BACK PAIN [None]
  - FATIGUE [None]
  - HYPERHIDROSIS [None]
  - MENSTRUATION IRREGULAR [None]
  - PLANTAR FASCIITIS [None]
  - THYROID CYST [None]
